FAERS Safety Report 25802830 (Version 1)
Quarter: 2025Q3

REPORT INFORMATION
  Report Type: Spontaneous
  Country: US (occurrence: None)
  Receive Date: 20250914
  Receipt Date: 20250914
  Transmission Date: 20251020
  Serious: No
  Sender: FDA-CTU
  Company Number: None

PATIENT
  Age: 52 Year
  Sex: Female
  Weight: 51.75 kg

DRUGS (1)
  1. MIRALAX [Suspect]
     Active Substance: POLYETHYLENE GLYCOL 3350
     Indication: Intestinal obstruction
     Dosage: OTHER QUANTITY : 1 CAPFUL;?FREQUENCY : DAILY;?
     Route: 048
     Dates: start: 20250909, end: 20250909

REACTIONS (10)
  - Physical product label issue [None]
  - Product advertising issue [None]
  - Peripheral swelling [None]
  - Joint swelling [None]
  - Pain in extremity [None]
  - Paraesthesia [None]
  - Fluid retention [None]
  - Tinnitus [None]
  - Hypoacusis [None]
  - Vertigo [None]

NARRATIVE: CASE EVENT DATE: 20250911
